FAERS Safety Report 6888552-3 (Version None)
Quarter: 2010Q3

REPORT INFORMATION
  Report Type: 
  Country: None (occurrence: None)
  Receive Date: 20100730
  Receipt Date: 20100720
  Transmission Date: 20110219
  Serious: Yes (Other)
  Sender: FDA-Public Use
  Company Number: US-ABBOTT-10P-163-0642213-00

PATIENT
  Sex: Male
  Weight: 79.45 kg

DRUGS (2)
  1. LUPRON DEPOT [Suspect]
     Indication: PROSTATE CANCER
     Dates: start: 20080802, end: 20090501
  2. LUPRON DEPOT [Suspect]
     Indication: METASTATIC NEOPLASM
     Dates: start: 20080802, end: 20090501

REACTIONS (25)
  - ANXIETY [None]
  - ASTHENIA [None]
  - BALANCE DISORDER [None]
  - BEDRIDDEN [None]
  - CEREBRAL THROMBOSIS [None]
  - CEREBROVASCULAR ACCIDENT [None]
  - CONFUSIONAL STATE [None]
  - COORDINATION ABNORMAL [None]
  - DIZZINESS [None]
  - EXPRESSIVE LANGUAGE DISORDER [None]
  - FATIGUE [None]
  - GAIT DISTURBANCE [None]
  - HEART RATE INCREASED [None]
  - IMPAIRED DRIVING ABILITY [None]
  - IMPAIRED WORK ABILITY [None]
  - INJECTION SITE PAIN [None]
  - LOSS OF CONSCIOUSNESS [None]
  - NIGHTMARE [None]
  - PHOTOPHOBIA [None]
  - READING DISORDER [None]
  - RESPIRATORY RATE INCREASED [None]
  - SYNCOPE [None]
  - TREMOR [None]
  - VISION BLURRED [None]
  - WALKING AID USER [None]
